FAERS Safety Report 5389873-6 (Version None)
Quarter: 2007Q3

REPORT INFORMATION
  Report Type: 
  Country: None (occurrence: None)
  Receive Date: 20070718
  Receipt Date: 20070707
  Transmission Date: 20080115
  Serious: Yes (Hospitalization)
  Sender: FDA-Public Use
  Company Number: PHHO2007MX11393

PATIENT
  Sex: Male

DRUGS (1)
  1. TEGRETOL [Suspect]
     Indication: DEPRESSION
     Dosage: 4 TABLETS (200MG)/DAY
     Route: 048
     Dates: start: 20070601

REACTIONS (1)
  - AGGRESSION [None]
